FAERS Safety Report 5064658-9 (Version None)
Quarter: 2006Q3

REPORT INFORMATION
  Report Type: 
  Country: None (occurrence: None)
  Receive Date: 20060728
  Receipt Date: 20010309
  Transmission Date: 20061208
  Serious: Yes (Hospitalization)
  Sender: FDA-Public Use
  Company Number: US-GLAXOSMITHKLINE-A0124017A

PATIENT
  Age: 69 Year
  Sex: Male
  Weight: 97.7 kg

DRUGS (7)
  1. FLOVENT [Suspect]
     Indication: ASTHMA
     Dosage: 2PUFF TWICE PER DAY
     Route: 055
     Dates: start: 19990601, end: 19990801
  2. COMBIVENT [Suspect]
     Dosage: 2PUFF FOUR TIMES PER DAY
     Route: 055
     Dates: end: 19990101
  3. COUMADIN [Concomitant]
     Indication: DEEP VEIN THROMBOSIS
     Route: 048
     Dates: start: 20000701
  4. PAXIL [Concomitant]
     Indication: NERVOUS SYSTEM DISORDER
     Route: 048
  5. PRILOSEC [Concomitant]
     Dosage: 20MG PER DAY
     Route: 048
  6. ACCOLATE [Concomitant]
  7. TYLENOL W/ CODEINE NO. 3 [Concomitant]
     Route: 048

REACTIONS (36)
  - ADVERSE EVENT [None]
  - APHONIA [None]
  - BLOOD GLUCOSE INCREASED [None]
  - BLOOD PRESSURE ABNORMAL [None]
  - COLD SWEAT [None]
  - CORONARY ARTERY DISEASE [None]
  - COUGH [None]
  - DIABETES MELLITUS [None]
  - DRY MOUTH [None]
  - DRY THROAT [None]
  - DYSPHAGIA [None]
  - DYSPHONIA [None]
  - DYSPNOEA [None]
  - FRUSTRATION [None]
  - FUNGAL INFECTION [None]
  - HYPERLIPIDAEMIA [None]
  - IMPAIRED HEALING [None]
  - LARYNGEAL OEDEMA [None]
  - LARYNGITIS [None]
  - LIVER DISORDER [None]
  - MUSCLE SWELLING [None]
  - MYOCARDIAL ISCHAEMIA [None]
  - NEPHRECTOMY [None]
  - NERVOUSNESS [None]
  - OROPHARYNGEAL SPASM [None]
  - PHARYNGEAL ERYTHEMA [None]
  - PHARYNGEAL OEDEMA [None]
  - PHARYNGITIS [None]
  - PHARYNGOLARYNGEAL DISCOMFORT [None]
  - PHARYNGOLARYNGEAL PAIN [None]
  - RECTAL HAEMORRHAGE [None]
  - RENAL CELL CARCINOMA STAGE UNSPECIFIED [None]
  - THROAT IRRITATION [None]
  - THROMBOSIS [None]
  - UPPER RESPIRATORY TRACT INFECTION [None]
  - VOCAL CORD DISORDER [None]
